FAERS Safety Report 6072987-5 (Version None)
Quarter: 2009Q1

REPORT INFORMATION
  Report Type: 
  Country: None (occurrence: None)
  Receive Date: 20090205
  Receipt Date: 20090205
  Transmission Date: 20090719
  Serious: Yes (Hospitalization, Other)
  Sender: FDA-Public Use
  Company Number: None

PATIENT
  Age: 63 Year
  Sex: Female
  Weight: 50 kg

DRUGS (6)
  1. FASLODEX [Suspect]
     Indication: BREAST CANCER
     Dosage: 250 MG - INTRAMUSCULAR
     Route: 030
     Dates: start: 20081208, end: 20081208
  2. AVE1642 - SOLUTION - 8 MG/KG [Suspect]
     Indication: BREAST CANCER
     Dosage: 440 MG - INTRAVENOUS DRIP
     Route: 041
     Dates: start: 20081208, end: 20081208
  3. SPASMAG [Concomitant]
  4. OXAZEPAM [Concomitant]
  5. ESOMEPRAZOLE MAGNESIUM [Concomitant]
  6. MILNACIPRAN [Concomitant]

REACTIONS (5)
  - ALANINE AMINOTRANSFERASE INCREASED [None]
  - ASPARTATE AMINOTRANSFERASE INCREASED [None]
  - CYTOLYTIC HEPATITIS [None]
  - HEPATOTOXICITY [None]
  - HYPERGLYCAEMIA [None]
